FAERS Safety Report 17823072 (Version 1)
Quarter: 2020Q2

REPORT INFORMATION
  Report Type: Spontaneous
  Country: JP (occurrence: JP)
  Receive Date: 20200526
  Receipt Date: 20200526
  Transmission Date: 20200714
  Serious: Yes (Hospitalization, Other)
  Sender: FDA-Public Use
  Company Number: JP-009507513-2005JPN007693

PATIENT
  Age: 30 Year
  Sex: Female
  Weight: 54 kg

DRUGS (8)
  1. GANIREST [Suspect]
     Active Substance: GANIRELIX ACETATE
     Indication: PRODUCT USED FOR UNKNOWN INDICATION
     Dosage: 0.25 MILLIGRAM (MG), QD
     Route: 058
     Dates: start: 20170125, end: 20170128
  2. PROGESTERONE. [Concomitant]
     Active Substance: PROGESTERONE
     Indication: PRODUCT USED FOR UNKNOWN INDICATION
     Dosage: 300 MILLIGRAM, QD
     Route: 067
     Dates: start: 20170220, end: 20170228
  3. GONATROPIN [Concomitant]
     Indication: PRODUCT USED FOR UNKNOWN INDICATION
     Dosage: 10000 INTERNATIONAL UNIT, QD
     Route: 030
     Dates: start: 20170128, end: 20170128
  4. GONAL-F [Suspect]
     Active Substance: FOLLITROPIN
     Indication: INFERTILITY FEMALE
     Dosage: 225 INTERNATIONAL UNIT, QD
     Route: 058
     Dates: start: 20170120, end: 20170128
  5. GONAL-F [Suspect]
     Active Substance: FOLLITROPIN
     Indication: INFERTILITY FEMALE
     Dosage: UNK
     Route: 058
     Dates: start: 201701, end: 201701
  6. ESTRANA [Concomitant]
     Active Substance: ESTRADIOL
     Indication: PRODUCT USED FOR UNKNOWN INDICATION
     Dosage: 1.44 (UNSPECIFIED UNITS), ESTRANA TAPE WAS CHANGED EVERY 48 HOURS.
     Route: 061
     Dates: start: 20170213, end: 20170228
  7. DUPHASTON [Concomitant]
     Active Substance: DYDROGESTERONE
     Indication: PRODUCT USED FOR UNKNOWN INDICATION
     Dosage: 6 DOSAGE FORMS, QD
     Route: 048
     Dates: start: 20170224, end: 20170228
  8. CABASER [Concomitant]
     Active Substance: CABERGOLINE
     Indication: PRODUCT USED FOR UNKNOWN INDICATION
     Dosage: 0.25 MILLIGRAM, QW
     Route: 048
     Dates: start: 20170213, end: 20170220

REACTIONS (3)
  - Blood pressure diastolic decreased [Unknown]
  - Intracranial artery dissection [Unknown]
  - Cerebral infarction [Unknown]

NARRATIVE: CASE EVENT DATE: 2017
